FAERS Safety Report 21570461 (Version 4)
Quarter: 2023Q2

REPORT INFORMATION
  Report Type: Report from Study
  Country: DE (occurrence: None)
  Receive Date: 20221109
  Receipt Date: 20230614
  Transmission Date: 20230722
  Serious: Yes (Hospitalization)
  Sender: FDA-Public Use
  Company Number: DE-ROCHE-3212841

PATIENT
  Age: 62 Year
  Sex: Female
  Weight: 74.5 kg

DRUGS (15)
  1. ATEZOLIZUMAB [Suspect]
     Active Substance: ATEZOLIZUMAB
     Indication: Triple negative breast cancer
     Dosage: DATE OF LAST DOSE PRIOR TO SAE: 29/SEP/2022
     Route: 041
     Dates: start: 20220609
  2. ATEZOLIZUMAB [Suspect]
     Active Substance: ATEZOLIZUMAB
     Route: 041
     Dates: start: 20221117
  3. PACLITAXEL [Suspect]
     Active Substance: PACLITAXEL
     Indication: Triple negative breast cancer
     Dosage: DATE OF LAST DOSE PRIOR TO SAE: 22/SEP/2022
     Route: 042
     Dates: start: 20220623
  4. CARBOPLATIN [Suspect]
     Active Substance: CARBOPLATIN
     Indication: Triple negative breast cancer
     Dosage: DATE OF LAST DOSE PRIOR TO SAE: 22/SEP/2022
     Route: 042
     Dates: start: 20220623
  5. EPIRUBICIN [Suspect]
     Active Substance: EPIRUBICIN
     Indication: Triple negative breast cancer
     Dosage: DATE OF LAST DOSE PRIOR TO SAE: 29/SEP/2022
     Route: 042
     Dates: start: 20220929, end: 20221027
  6. EPIRUBICIN [Suspect]
     Active Substance: EPIRUBICIN
     Route: 042
     Dates: start: 20221117
  7. CYCLOPHOSPHAMIDE [Suspect]
     Active Substance: CYCLOPHOSPHAMIDE
     Indication: Triple negative breast cancer
     Dosage: DATE OF LAST DOSE PRIOR TO SAE: 29/SEP/2022
     Route: 042
     Dates: start: 20220929, end: 20221027
  8. CYCLOPHOSPHAMIDE [Suspect]
     Active Substance: CYCLOPHOSPHAMIDE
     Route: 042
     Dates: start: 20221117
  9. ENALAPRIL [Concomitant]
     Active Substance: ENALAPRIL
  10. METOPROLOL [Concomitant]
     Active Substance: METOPROLOL
  11. AMOXICILLIN [Concomitant]
     Active Substance: AMOXICILLIN
     Dates: start: 20220726
  12. CLAVULANIC ACID [Concomitant]
     Active Substance: CLAVULANIC ACID
     Dates: start: 20220726
  13. ASPIRIN [Concomitant]
     Active Substance: ASPIRIN
     Dates: start: 20220830
  14. ATORVASTATIN [Concomitant]
     Active Substance: ATORVASTATIN
  15. FLUCONAZOLE [Concomitant]
     Active Substance: FLUCONAZOLE
     Dates: start: 20221005, end: 20221012

REACTIONS (2)
  - Neutrophil count decreased [Recovered/Resolved with Sequelae]
  - General physical health deterioration [Recovered/Resolved]

NARRATIVE: CASE EVENT DATE: 20221005
